FAERS Safety Report 7536345-6 (Version None)
Quarter: 2011Q2

REPORT INFORMATION
  Report Type: 
  Country: None (occurrence: None)
  Receive Date: 20110602
  Receipt Date: 20110523
  Transmission Date: 20111010
  Serious: Yes (Death, Hospitalization)
  Sender: FDA-Public Use
  Company Number: 2011000472

PATIENT
  Age: 57 Year
  Sex: Male
  Weight: 68 kg

DRUGS (17)
  1. ERLOTINIB HCL BLINDED [Suspect]
  2. NERISONE [Concomitant]
  3. ERLOTINIB HYDROCHLORIDE [Suspect]
     Indication: HEPATIC NEOPLASM MALIGNANT
     Dosage: 100 MG, UID/QD, ORAL
     Route: 048
     Dates: start: 20101123, end: 20110105
  4. ERLOTINIB HYDROCHLORIDE [Suspect]
     Indication: HEPATIC NEOPLASM MALIGNANT
     Dosage: 100 MG, UID/QD, ORAL
     Route: 048
     Dates: start: 20110105, end: 20110106
  5. ERLOTINIB HYDROCHLORIDE [Suspect]
     Indication: HEPATIC NEOPLASM MALIGNANT
     Dosage: 100 MG, UID/QD, ORAL
     Route: 048
     Dates: start: 20100830
  6. SODIUM BICARBONATE IN PLASTIC CONTAINER [Concomitant]
  7. TRAVOCORT (TRAVOCORT) [Concomitant]
  8. VITAMIN B COMPLEX (B-KOMPLEX ^LECIVA^) [Concomitant]
  9. URSODIOL [Concomitant]
  10. OXYCODONE HCL [Concomitant]
  11. LEGALON (SILYMARIN) [Concomitant]
  12. PHYSIOGEL (PHYSUIGEL) [Concomitant]
  13. SORAFENIB (SORAFENIB) [Suspect]
     Indication: HEPATIC NEOPLASM MALIGNANT
     Dosage: 400 MG, UID/QD, ORAL
     Route: 048
     Dates: start: 20101123, end: 20101214
  14. SORAFENIB (SORAFENIB) [Suspect]
     Indication: HEPATIC NEOPLASM MALIGNANT
     Dosage: 400 MG, UID/QD, ORAL
     Route: 048
     Dates: start: 20101215, end: 20110106
  15. SORAFENIB (SORAFENIB) [Suspect]
     Indication: HEPATIC NEOPLASM MALIGNANT
     Dosage: 400 MG, UID/QD, ORAL
     Route: 048
     Dates: start: 20100830
  16. NIVEA (GLYCEROL, GLYCERYL, MONOSTERATE, PARAFIN, LIQUID, SIMETICONE) [Concomitant]
  17. ALIMENTARY TRACT AND METABOLISM [Concomitant]

REACTIONS (7)
  - CONFUSIONAL STATE [None]
  - COMA [None]
  - RENAL FAILURE ACUTE [None]
  - MENTAL STATUS CHANGES [None]
  - PNEUMONIA [None]
  - DISSEMINATED INTRAVASCULAR COAGULATION [None]
  - SEPSIS [None]
